FAERS Safety Report 12922133 (Version 2)
Quarter: 2016Q4

REPORT INFORMATION
  Report Type: Spontaneous
  Country: US (occurrence: US)
  Receive Date: 20161108
  Receipt Date: 20161213
  Transmission Date: 20170207
  Serious: Yes (Death)
  Sender: FDA-Public Use
  Company Number: US-BRACCO-014096

PATIENT
  Age: 65 Year
  Sex: Female
  Weight: 87 kg

DRUGS (1)
  1. ISOVUE 370 [Suspect]
     Active Substance: IOPAMIDOL
     Indication: COMPUTERISED TOMOGRAM
     Route: 042
     Dates: start: 20161026, end: 20161026

REACTIONS (6)
  - Nausea [Unknown]
  - Wheezing [Unknown]
  - Pulse absent [Recovered/Resolved]
  - Loss of consciousness [Unknown]
  - Cardio-respiratory arrest [Fatal]
  - Dizziness [Unknown]

NARRATIVE: CASE EVENT DATE: 20161026
